FAERS Safety Report 9120838 (Version 4)
Quarter: 2013Q3

REPORT INFORMATION
  Report Type: Spontaneous
  Country: US (occurrence: US)
  Receive Date: 20130226
  Receipt Date: 20130913
  Transmission Date: 20140515
  Serious: Yes (Hospitalization, Other)
  Sender: FDA-Public Use
  Company Number: US-009507513-1302USA009941

PATIENT
  Sex: Female
  Weight: 99.77 kg

DRUGS (1)
  1. NUVARING [Suspect]
     Indication: CONTRACEPTION
     Dosage: UNK
     Route: 067
     Dates: start: 2004, end: 20110303

REACTIONS (14)
  - Pulmonary embolism [Recovering/Resolving]
  - Migraine [Unknown]
  - Blood disorder [Unknown]
  - Adenotonsillectomy [Unknown]
  - Loop electrosurgical excision procedure [Unknown]
  - Wisdom teeth removal [Unknown]
  - Cervical dysplasia [Unknown]
  - Respiratory tract congestion [Unknown]
  - Cough [Unknown]
  - Nasopharyngitis [Unknown]
  - Muscle spasms [Unknown]
  - Vulvovaginal mycotic infection [Unknown]
  - Loop electrosurgical excision procedure [Unknown]
  - Cervical dysplasia [Unknown]
